FAERS Safety Report 6509210-0 (Version None)
Quarter: 2009Q4

REPORT INFORMATION
  Report Type: 
  Country: None (occurrence: None)
  Receive Date: 20091221
  Receipt Date: 20091006
  Transmission Date: 20100525
  Serious: No
  Sender: FDA-Public Use
  Company Number: US-TYCO HEALTHCARE/MALLINCKRODT-T200901854

PATIENT
  Sex: Female

DRUGS (2)
  1. TECHNETIUM TC 99M SESTAMIBI [Suspect]
     Indication: CARDIAC STRESS TEST
     Dosage: UNK, SINGLE
     Route: 042
     Dates: start: 20090930, end: 20090930
  2. ULTRA-TECHNEKOW [Suspect]
     Indication: CARDIAC STRESS TEST
     Dosage: 21 MCI, SINGLE
     Route: 042
     Dates: start: 20090930, end: 20090930

REACTIONS (3)
  - BLISTER [None]
  - ORAL PAIN [None]
  - SWELLING [None]
